FAERS Safety Report 4625626-1 (Version None)
Quarter: 2005Q1

REPORT INFORMATION
  Report Type: 
  Country: None (occurrence: None)
  Receive Date: 20050330
  Receipt Date: 20050314
  Transmission Date: 20050727
  Serious: Yes (Hospitalization)
  Sender: FDA-Public Use
  Company Number: FR_050306026

PATIENT
  Age: 65 Year
  Sex: Male
  Weight: 75 kg

DRUGS (5)
  1. PERGOLIDE MESYLATE [Suspect]
     Indication: PARKINSON'S DISEASE
     Dosage: 1 MG/3 DAY
     Dates: start: 20030915, end: 20041015
  2. BRICANYL [Concomitant]
  3. MODOPAR [Concomitant]
  4. THEOPHYLLINE [Concomitant]
  5. ZOCOR (SIMVASTATIN RATIOPHARM) [Concomitant]

REACTIONS (4)
  - AORTIC VALVE SCLEROSIS [None]
  - AORTIC VALVE STENOSIS [None]
  - ATRIAL FIBRILLATION [None]
  - CARDIAC FAILURE [None]
